FAERS Safety Report 7555727-X (Version None)
Quarter: 2011Q2

REPORT INFORMATION
  Report Type: 
  Country: None (occurrence: None)
  Receive Date: 20110617
  Receipt Date: 20110601
  Transmission Date: 20111010
  Serious: Yes (Death)
  Sender: FDA-Public Use
  Company Number: DE-GENENTECH-317353

PATIENT
  Age: 71 Year

DRUGS (3)
  1. GEMCITABINE [Suspect]
     Indication: NON-HODGKIN'S LYMPHOMA
     Dosage: 1845 MG, UNK
     Route: 042
     Dates: start: 20090109, end: 20090123
  2. RITUXIMAB [Suspect]
     Indication: NON-HODGKIN'S LYMPHOMA
     Route: 042
     Dates: end: 20090123
  3. OXALIPLATIN [Suspect]
     Indication: NON-HODGKIN'S LYMPHOMA
     Route: 042
     Dates: start: 20090109, end: 20090123

REACTIONS (2)
  - GENERAL PHYSICAL HEALTH DETERIORATION [None]
  - BONE PAIN [None]
